FAERS Safety Report 23140170 (Version 2)
Quarter: 2023Q4

REPORT INFORMATION
  Report Type: Spontaneous
  Country: US (occurrence: None)
  Receive Date: 20231102
  Receipt Date: 20231122
  Transmission Date: 20240110
  Serious: Yes (Hospitalization)
  Sender: FDA-Public Use
  Company Number: US-ROCHE-3445519

PATIENT
  Age: 53 Year
  Sex: Female
  Weight: 81.266 kg

DRUGS (34)
  1. OCREVUS [Suspect]
     Active Substance: OCRELIZUMAB
     Indication: Relapsing-remitting multiple sclerosis
     Dosage: LAST INFUSION OF OCREVUS WAS ON 12/OCT/2023
     Route: 042
     Dates: start: 2019
  2. ACYCLOVIR [Concomitant]
     Active Substance: ACYCLOVIR
  3. ALBUTEROL [Concomitant]
     Active Substance: ALBUTEROL
  4. ALBUTEROL SULFATE [Concomitant]
     Active Substance: ALBUTEROL SULFATE
  5. ADDERALL XR [Concomitant]
     Active Substance: AMPHETAMINE ASPARTATE\AMPHETAMINE SULFATE\DEXTROAMPHETAMINE SACCHARATE\DEXTROAMPHETAMINE SULFATE
  6. VITAMIN C [Concomitant]
     Active Substance: ASCORBIC ACID
  7. ASPIRIN [Concomitant]
     Active Substance: ASPIRIN
  8. ATORVASTATIN [Concomitant]
     Active Substance: ATORVASTATIN
  9. BUSPAR [Concomitant]
     Active Substance: BUSPIRONE HYDROCHLORIDE
  10. CALTRATE WITH VITAMIN D [Concomitant]
     Active Substance: CALCIUM CARBONATE\CHOLECALCIFEROL
  11. CHLORPROMAZINE [Concomitant]
     Active Substance: CHLORPROMAZINE
  12. TEMOVATE [Concomitant]
     Active Substance: CLOBETASOL PROPIONATE
  13. COQ10 EXCEL [Concomitant]
  14. DILTIAZEM [Concomitant]
     Active Substance: DILTIAZEM
  15. COLACE [Concomitant]
     Active Substance: DOCUSATE SODIUM
  16. DOXEPIN [Concomitant]
     Active Substance: DOXEPIN
  17. ALLEGRA [Concomitant]
     Active Substance: FEXOFENADINE HYDROCHLORIDE
  18. ADVAIR DISKUS [Concomitant]
     Active Substance: FLUTICASONE PROPIONATE\SALMETEROL XINAFOATE
  19. FLONASE [Concomitant]
     Active Substance: FLUTICASONE PROPIONATE
  20. GABAPENTIN [Concomitant]
     Active Substance: GABAPENTIN
  21. HUMALOG KWIKPEN [Concomitant]
     Active Substance: INSULIN LISPRO
  22. BONIVA [Concomitant]
     Active Substance: IBANDRONATE SODIUM
  23. ARAVA [Concomitant]
     Active Substance: LEFLUNOMIDE
  24. KEPPRA [Concomitant]
     Active Substance: LEVETIRACETAM
  25. MORPHINE [Concomitant]
     Active Substance: MORPHINE
  26. NARCAN [Concomitant]
     Active Substance: NALOXONE HYDROCHLORIDE
  27. NITROGLYCERIN [Concomitant]
     Active Substance: NITROGLYCERIN
  28. OMEPRAZOLE [Concomitant]
     Active Substance: OMEPRAZOLE
  29. ZOFRAN [Concomitant]
     Active Substance: ONDANSETRON HYDROCHLORIDE
  30. OTEZLA [Concomitant]
     Active Substance: APREMILAST
  31. OZEMPIC [Concomitant]
     Active Substance: SEMAGLUTIDE
  32. ZINC [Concomitant]
     Active Substance: PYRITHIONE ZINC\ZINC\ZINC CHLORIDE
  33. KRILL OIL [Concomitant]
     Active Substance: DIETARY SUPPLEMENT\KRILL OIL
  34. METFORMIN [Concomitant]
     Active Substance: METFORMIN HYDROCHLORIDE

REACTIONS (19)
  - Neck pain [Unknown]
  - Dysphagia [Recovered/Resolved]
  - Road traffic accident [Recovered/Resolved]
  - Post-traumatic neck syndrome [Unknown]
  - Tremor [Unknown]
  - Balance disorder [Unknown]
  - Fall [Unknown]
  - Asthma [Not Recovered/Not Resolved]
  - Psoriasis [Not Recovered/Not Resolved]
  - Oesophageal disorder [Not Recovered/Not Resolved]
  - Psoriatic arthropathy [Not Recovered/Not Resolved]
  - Nausea [Not Recovered/Not Resolved]
  - Vomiting [Not Recovered/Not Resolved]
  - Paraesthesia [Unknown]
  - Rash erythematous [Recovered/Resolved]
  - Blister [Recovered/Resolved]
  - Muscle spasms [Unknown]
  - Nasopharyngitis [Unknown]
  - Musculoskeletal stiffness [Unknown]

NARRATIVE: CASE EVENT DATE: 20220101
